FAERS Safety Report 8618120-4 (Version None)
Quarter: 2012Q3

REPORT INFORMATION
  Report Type: 
  Country: None (occurrence: None)
  Receive Date: 20120824
  Receipt Date: 20120403
  Transmission Date: 20120928
  Serious: No
  Sender: FDA-Public Use
  Company Number: US-ASTRAZENECA-2009SE24999

PATIENT
  Age: 62 Year
  Sex: Female

DRUGS (4)
  1. CRESTOR [Suspect]
     Route: 048
  2. SYMBICORT [Suspect]
     Dosage: 80 /4.5 MICROGRAMS, UNKNOWN FREQUENCY.
     Route: 055
  3. SYMBICORT [Suspect]
     Dosage: 80 /4.5 MICROGRAMS DAILY.
     Route: 055
  4. SYMBICORT [Suspect]
     Dosage: 160/4.5 MICROGRAMS DAILY.
     Route: 055

REACTIONS (4)
  - ADVERSE EVENT [None]
  - ASTHMA [None]
  - PEAK EXPIRATORY FLOW RATE DECREASED [None]
  - INTENTIONAL DRUG MISUSE [None]
